FAERS Safety Report 10174435 (Version 1)
Quarter: 2014Q2

REPORT INFORMATION
  Report Type: Spontaneous
  Country: US (occurrence: US)
  Receive Date: 20140515
  Receipt Date: 20140515
  Transmission Date: 20141212
  Serious: Yes (Life-Threatening, Other)
  Sender: FDA-Public Use
  Company Number: US-009507513-1405USA005060

PATIENT
  Age: 2 Year
  Sex: Female
  Weight: 22.5 kg

DRUGS (6)
  1. AFRIN [Suspect]
     Indication: ENDOSCOPY
     Dosage: 0.025 %, ONCE INTO EACH NARIS
     Route: 045
  2. BECLOMETHASONE DIPROPIONATE [Concomitant]
     Indication: PRODUCT USED FOR UNKNOWN INDICATION
     Dosage: 0.04 %, UNKNOWN
  3. AMOXICILLIN [Concomitant]
     Indication: PRODUCT USED FOR UNKNOWN INDICATION
     Dosage: 125 MG, BID
  4. HALOTHANE [Concomitant]
     Indication: ANAESTHESIA
     Route: 055
  5. NITROUS OXIDE [Concomitant]
     Indication: ANAESTHESIA
     Dosage: UNK, UNKNOWN
     Route: 055
  6. OXYGEN [Concomitant]
     Indication: ANAESTHESIA
     Dosage: UNK, UNKNOWN
     Route: 055

REACTIONS (3)
  - Cardiac arrest [Recovered/Resolved]
  - Hypertension [Recovered/Resolved]
  - Off label use [Recovered/Resolved]
